FAERS Safety Report 4797126-X (Version None)
Quarter: 2005Q4

REPORT INFORMATION
  Report Type: 
  Country: None (occurrence: None)
  Receive Date: 20051013
  Receipt Date: 20050929
  Transmission Date: 20060501
  Serious: Yes (Disabling)
  Sender: FDA-Public Use
  Company Number: BE-ROCHE-419266

PATIENT
  Age: 65 Year
  Sex: Female
  Weight: 68 kg

DRUGS (6)
  1. PEG-INTERFERON ALFA 2A (RO 25-8310) [Suspect]
     Route: 058
     Dates: start: 20041203, end: 20050812
  2. PEG-INTERFERON ALFA 2A (RO 25-8310) [Suspect]
     Route: 058
     Dates: start: 20050812, end: 20050929
  3. RIBAVIRIN [Suspect]
     Route: 048
     Dates: start: 20041203, end: 20050812
  4. ZALDIAR [Concomitant]
     Dates: start: 20041201
  5. SEROXAT [Concomitant]
     Dates: start: 20000615
  6. TEMESTA [Concomitant]
     Dates: start: 20000615

REACTIONS (5)
  - ANAEMIA [None]
  - CONFUSIONAL STATE [None]
  - ECZEMA [None]
  - SPEECH DISORDER [None]
  - VERTIGO [None]
